FAERS Safety Report 4582718-3 (Version None)
Quarter: 2005Q1

REPORT INFORMATION
  Report Type: 
  Country: None (occurrence: None)
  Receive Date: 20050215
  Receipt Date: 20050208
  Transmission Date: 20050727
  Serious: Yes (Life-Threatening, Hospitalization)
  Sender: FDA-Public Use
  Company Number: FR-BRISTOL-MYERS SQUIBB COMPANY-12859435

PATIENT
  Age: 56 Year
  Sex: Male

DRUGS (4)
  1. GLUCOPHAGE [Suspect]
     Indication: DIABETES MELLITUS NON-INSULIN-DEPENDENT
     Dosage: HAD BEEN ON 850 MG, 1 DF/DAY FOR 2-3 YEARS, INCREASED TO 2 DF/DAY APPROX. ONE MONTH PRIOR TO EVENTS
     Route: 048
  2. KALEORID [Suspect]
     Indication: HYPOKALAEMIA
     Dosage: HAD BEEN ON 1 DF/DAY FOR 2-3 YEARS, INCREASED TO 2 DF/DAY APPROX. ONE MONTH PRIOR TO EVENTS
     Route: 048
  3. LASILIX [Suspect]
     Indication: CARDIAC FAILURE
     Dosage: DURATION OF THERAPY - 2-3 YEARS
     Route: 048
  4. AMLOR [Suspect]
     Route: 048

REACTIONS (7)
  - ARRHYTHMIA [None]
  - BLOOD GLUCOSE INCREASED [None]
  - BLOOD POTASSIUM DECREASED [None]
  - FATIGUE [None]
  - LACTIC ACIDOSIS [None]
  - MALAISE [None]
  - RENAL FAILURE [None]
